FAERS Safety Report 23983782 (Version 5)
Quarter: 2025Q4

REPORT INFORMATION
  Report Type: Report from Study
  Country: JP (occurrence: JP)
  Receive Date: 20240618
  Receipt Date: 20251117
  Transmission Date: 20260118
  Serious: Yes (Hospitalization, Other)
  Sender: AMGEN
  Company Number: JP-KISSEI-TV20240449_P_1

PATIENT
  Age: 70 Year
  Sex: Male
  Weight: 62.5 kg

DRUGS (27)
  1. AVACOPAN [Suspect]
     Active Substance: AVACOPAN
     Indication: Microscopic polyangiitis
     Dosage: 30,MG,BID
     Route: 048
     Dates: start: 20230816
  2. AVACOPAN [Suspect]
     Active Substance: AVACOPAN
     Dosage: 30,MG,BID
     Route: 048
     Dates: start: 20250621, end: 20250628
  3. PREDNISOLONE [Suspect]
     Active Substance: PREDNISOLONE
     Indication: Microscopic polyangiitis
     Dosage: 15,MG,QD
     Route: 048
  4. PREDNISOLONE [Suspect]
     Active Substance: PREDNISOLONE
     Dosage: 12.5,MG,QD
     Route: 048
     Dates: end: 20230830
  5. PREDNISOLONE [Suspect]
     Active Substance: PREDNISOLONE
     Dosage: 10,MG,QD
     Route: 048
     Dates: start: 20230831, end: 20230913
  6. PREDNISOLONE [Suspect]
     Active Substance: PREDNISOLONE
     Dosage: 9,MG,QD
     Route: 048
     Dates: start: 20230914, end: 20231011
  7. PREDNISOLONE [Suspect]
     Active Substance: PREDNISOLONE
     Dosage: 8,MG,QD
     Route: 048
     Dates: start: 20231012, end: 20240124
  8. PREDNISOLONE [Suspect]
     Active Substance: PREDNISOLONE
     Dosage: 15,MG,QD
     Route: 048
     Dates: start: 20240125, end: 20240207
  9. PREDNISOLONE [Suspect]
     Active Substance: PREDNISOLONE
     Dosage: 12.5,MG,QD
     Route: 048
     Dates: start: 20240208, end: 20240221
  10. PREDNISOLONE [Suspect]
     Active Substance: PREDNISOLONE
     Dosage: 11,MG,QD
     Route: 048
     Dates: start: 20240222, end: 20240403
  11. PREDNISOLONE [Suspect]
     Active Substance: PREDNISOLONE
     Dosage: 10,MG,QD
     Route: 048
     Dates: start: 20240404, end: 20240501
  12. PREDNISOLONE [Suspect]
     Active Substance: PREDNISOLONE
     Dosage: 9 MG, QD
     Route: 048
     Dates: start: 20240502, end: 20240703
  13. PREDNISOLONE [Suspect]
     Active Substance: PREDNISOLONE
     Dosage: 8 MG, QD
     Route: 048
     Dates: start: 20240704, end: 20240906
  14. PREDNISOLONE [Suspect]
     Active Substance: PREDNISOLONE
     Dosage: 7 MG, QD
     Route: 048
     Dates: start: 20240907, end: 20241001
  15. PREDNISOLONE [Suspect]
     Active Substance: PREDNISOLONE
     Dosage: 6 MG, QD
     Route: 048
     Dates: start: 20241002, end: 20241204
  16. PREDNISOLONE [Suspect]
     Active Substance: PREDNISOLONE
     Dosage: 5 MG, QD
     Route: 048
     Dates: start: 20241205
  17. RITUXIMAB [Suspect]
     Active Substance: RITUXIMAB
     Indication: Microscopic polyangiitis
     Dosage: 680 MG
     Route: 040
  18. RITUXIMAB [Suspect]
     Active Substance: RITUXIMAB
     Dosage: 680 MG
     Route: 040
  19. RITUXIMAB [Suspect]
     Active Substance: RITUXIMAB
     Dosage: 680 MG
     Route: 040
     Dates: end: 20250512
  20. AUGMENTIN [Suspect]
     Active Substance: AMOXICILLIN\CLAVULANATE POTASSIUM
     Indication: Pneumonia bacterial
     Dosage: UNK
     Route: 048
     Dates: start: 20240124, end: 20240207
  21. AUGMENTIN [Suspect]
     Active Substance: AMOXICILLIN\CLAVULANATE POTASSIUM
     Dosage: UNK
     Route: 048
     Dates: start: 20250616, end: 20250617
  22. CEFTRIAXONE [Suspect]
     Active Substance: CEFTRIAXONE
     Indication: Microscopic polyangiitis
     Dosage: UNK
     Route: 040
     Dates: end: 20250621
  23. CEFTRIAXONE [Suspect]
     Active Substance: CEFTRIAXONE
     Indication: Pneumonia bacterial
  24. SULFAMETHOXAZOLE\TRIMETHOPRIM [Concomitant]
     Active Substance: SULFAMETHOXAZOLE\TRIMETHOPRIM
     Indication: Antifungal prophylaxis
     Dosage: 1,MG,QW
     Route: 048
  25. SULFAMETHOXAZOLE\TRIMETHOPRIM [Concomitant]
     Active Substance: SULFAMETHOXAZOLE\TRIMETHOPRIM
     Dosage: 480 MG, QW
     Route: 048
  26. ALFACALCIDOL [Concomitant]
     Active Substance: ALFACALCIDOL
     Indication: Osteoporosis
     Dosage: UNK,UNK,UNK
     Route: 048
  27. CARBOCYSTEINE [Concomitant]
     Active Substance: CARBOCYSTEINE
     Indication: Emphysema
     Dosage: UNK,UNK,UNK
     Route: 048
     Dates: start: 20240221, end: 20240703

REACTIONS (4)
  - Pneumonia bacterial [Recovering/Resolving]
  - Pneumonia bacterial [Recovering/Resolving]
  - Cough [Recovering/Resolving]
  - Liver disorder [Recovering/Resolving]

NARRATIVE: CASE EVENT DATE: 20240124
